FAERS Safety Report 4309681-4 (Version None)
Quarter: 2004Q1

REPORT INFORMATION
  Report Type: 
  Country: None (occurrence: None)
  Receive Date: 20040302
  Receipt Date: 20040223
  Transmission Date: 20041129
  Serious: Yes (Death)
  Sender: FDA-Public Use
  Company Number: USA-2003-0011531

PATIENT
  Age: 75 Year
  Sex: Male
  Weight: 71.7 kg

DRUGS (6)
  1. OXYCODONE HCL [Suspect]
  2. IBUPROFEN [Suspect]
  3. CAFFEINE (CAFFEINE) [Suspect]
  4. METOPROLOL (METOPROLOL) [Suspect]
  5. NICOTINR (NICOTINE) [Suspect]
  6. ACETAMINOPHEN [Suspect]

REACTIONS (5)
  - AORTIC ANEURYSM [None]
  - COMPLETED SUICIDE [None]
  - GUN SHOT WOUND [None]
  - HAEMORRHAGE INTRACRANIAL [None]
  - TOXICOLOGIC TEST ABNORMAL [None]
